FAERS Safety Report 7376074-5 (Version None)
Quarter: 2011Q1

REPORT INFORMATION
  Report Type: 
  Country: None (occurrence: None)
  Receive Date: 20110325
  Receipt Date: 20110318
  Transmission Date: 20110831
  Serious: Yes (Hospitalization)
  Sender: FDA-Public Use
  Company Number: NL-MEDIMMUNE-MEDI-0012212

PATIENT
  Sex: Male
  Weight: 7.53 kg

DRUGS (6)
  1. SYNAGIS [Suspect]
     Route: 030
     Dates: start: 20110113, end: 20110113
  2. FUROSEMIDE [Concomitant]
     Dates: start: 20100101
  3. SPIRONOLACTONE [Concomitant]
     Dates: start: 20100101
  4. SYNAGIS [Suspect]
     Route: 030
     Dates: start: 20101119, end: 20101216
  5. UNKNOWN PUFF NOS [Concomitant]
     Dates: start: 20110317, end: 20110317
  6. LACTULOSE [Concomitant]

REACTIONS (5)
  - WHEEZING [None]
  - VOMITING [None]
  - DIARRHOEA [None]
  - COUGH [None]
  - DYSPNOEA [None]
